FAERS Safety Report 7715246-4 (Version None)
Quarter: 2011Q3

REPORT INFORMATION
  Report Type: 
  Country: None (occurrence: None)
  Receive Date: 20110829
  Receipt Date: 20110826
  Transmission Date: 20111222
  Serious: Yes (Other)
  Sender: FDA-Public Use
  Company Number: US-PFIZER INC-2011173612

PATIENT
  Sex: Female
  Weight: 76.64 kg

DRUGS (5)
  1. LIPITOR [Concomitant]
     Dosage: UNK
  2. ALBUTEROL SULFATE AUTOHALER [Concomitant]
     Dosage: UNK
  3. CALCIUM [Concomitant]
     Dosage: UNK
  4. CATAPRES [Concomitant]
     Indication: HYPERTENSION
     Dosage: UNK
  5. CHANTIX [Suspect]
     Indication: SMOKING CESSATION THERAPY
     Dosage: 0.5 MG, 1X/DAY
     Route: 048

REACTIONS (5)
  - URTICARIA [None]
  - NAUSEA [None]
  - CHEST PAIN [None]
  - MYOCARDIAL INFARCTION [None]
  - SKIN DISORDER [None]
